FAERS Safety Report 8522716 (Version 4)
Quarter: 2013Q2

REPORT INFORMATION
  Report Type: Report from Study
  Country: US (occurrence: US)
  Receive Date: 20120419
  Receipt Date: 20130620
  Transmission Date: 20140414
  Serious: Yes (Hospitalization)
  Sender: FDA-Public Use
  Company Number: US-ELI_LILLY_AND_COMPANY-US201204004804

PATIENT
  Age: 72 Year
  Sex: Female
  Weight: 67.12 kg

DRUGS (12)
  1. TERIPARATIDE [Suspect]
     Indication: SENILE OSTEOPOROSIS
     Dosage: 20 UG, QD
     Route: 058
     Dates: start: 20110601
  2. TERIPARATIDE [Suspect]
     Dosage: 20 UG, QD
     Route: 058
     Dates: start: 20110601
  3. CALCIUM OYSTER SHELL [Concomitant]
     Dosage: 500 MG, UNKNOWN
  4. ENTERIC ASPIRIN [Concomitant]
     Dosage: 325 MG, UNKNOWN
  5. GEMFIBROZIL [Concomitant]
     Dosage: UNK, BID
  6. METOPROLOL SUCCINATE [Concomitant]
     Dosage: 25 MG, UNKNOWN
  7. LOSARTAN [Concomitant]
  8. VITAMIN D3 [Concomitant]
     Dosage: 1000 IU, OTHER
  9. RANITIDINE [Concomitant]
     Dosage: 75 MG, BID
  10. FISH OIL [Concomitant]
     Dosage: 1000 MG, BID
  11. ULTRAM [Concomitant]
     Dosage: UNK, OTHER
  12. PRAVACHOL [Concomitant]
     Dosage: 40 MG, UNKNOWN

REACTIONS (6)
  - Bacterial test positive [Recovered/Resolved]
  - Urinary tract infection [Unknown]
  - Nausea [Unknown]
  - Injection site bruising [Unknown]
  - Dysstasia [Unknown]
  - Nerve compression [Unknown]
